FAERS Safety Report 6709651-2 (Version None)
Quarter: 2010Q2

REPORT INFORMATION
  Report Type: 
  Country: None (occurrence: None)
  Receive Date: 20100503
  Receipt Date: 20100503
  Transmission Date: 20101027
  Serious: Yes (Other)
  Sender: FDA-Public Use
  Company Number: None

PATIENT
  Age: 11 Year
  Sex: Male
  Weight: 45.3597 kg

DRUGS (1)
  1. CHILDREN'S MOTRIN [Suspect]
     Indication: EAR PAIN
     Dosage: 2 TSP PO 1 TIME
     Route: 048
     Dates: start: 20100429, end: 20100429

REACTIONS (6)
  - DYSPNOEA [None]
  - HYPERSENSITIVITY [None]
  - OEDEMA PERIPHERAL [None]
  - PRODUCT QUALITY ISSUE [None]
  - SWELLING FACE [None]
  - URTICARIA [None]
